FAERS Safety Report 6152888-4 (Version None)
Quarter: 2009Q2

REPORT INFORMATION
  Report Type: 
  Country: None (occurrence: None)
  Receive Date: 20090413
  Receipt Date: 20090406
  Transmission Date: 20091009
  Serious: Yes (Hospitalization, Other)
  Sender: FDA-Public Use
  Company Number: PHHY2009BR10423

PATIENT
  Age: 58 Year
  Sex: Male

DRUGS (4)
  1. DIOVAN HCT [Suspect]
     Indication: HYPERTENSION
     Dosage: 160/12.5MG/DAY
     Route: 048
     Dates: start: 20080301
  2. DIOVAN HCT [Suspect]
     Dosage: 160/12.5MG/DAY
     Route: 048
     Dates: start: 20090304
  3. DIOVAN HCT [Suspect]
     Dosage: 160/12.5MG/DAY
     Route: 048
     Dates: start: 20090320
  4. METFORMINE ^MERCK^ [Concomitant]
     Indication: DIABETES MELLITUS
     Dosage: UNK

REACTIONS (7)
  - BLOOD PRESSURE INCREASED [None]
  - CATHETER PLACEMENT [None]
  - DRUG INEFFECTIVE [None]
  - HOT FLUSH [None]
  - NEPHROLITHIASIS [None]
  - PULSE ABNORMAL [None]
  - URETHRAL PAIN [None]
